FAERS Safety Report 12989664 (Version 1)
Quarter: 2016Q4

REPORT INFORMATION
  Report Type: Spontaneous
  Country: US (occurrence: US)
  Receive Date: 20161201
  Receipt Date: 20161201
  Transmission Date: 20170207
  Serious: Yes (Other)
  Sender: FDA-Public Use
  Company Number: US-CLINIGEN GROUP PLC/ CLINIGEN HEALTHCARE LTD-E2B_00004575

PATIENT
  Age: 26 Year
  Sex: Female

DRUGS (2)
  1. MORPHINE [Concomitant]
     Active Substance: MORPHINE
     Route: 065
  2. FOSCARNET?SODIUM [Suspect]
     Active Substance: FOSCARNET SODIUM
     Indication: HERPES SIMPLEX
     Route: 042
     Dates: start: 19920521

REACTIONS (6)
  - Muscular weakness [Unknown]
  - Blood creatinine increased [Unknown]
  - Cerebral ischaemia [Unknown]
  - Pyrexia [Unknown]
  - Headache [Unknown]
  - Neutropenia [Unknown]

NARRATIVE: CASE EVENT DATE: 199201
